FAERS Safety Report 8784646 (Version 1)
Quarter: 2012Q4

REPORT INFORMATION
  Report Type: Spontaneous
  Country: US (occurrence: None)
  Receive Date: 20120831
  Receipt Date: 20120831
  Transmission Date: 20130627
  Serious: Yes (Hospitalization)
  Sender: FDA-Public Use
  Company Number: 1393472

PATIENT
  Age: 36 Year
  Sex: Male

DRUGS (10)
  1. DOPAMINE HYDROCHLORIDE [Suspect]
     Indication: RESUSCITATION
     Dosage: 8 mcg/kg/min
     Route: 042
  2. LIDOCAINE HYDROCHLORIDE [Concomitant]
  3. EPINEPHRINE [Concomitant]
  4. PROCAINAMIDE HYDROCHLORIDE [Suspect]
  5. PROPOFOL [Suspect]
  6. VECURONIUM BROMIDE [Concomitant]
  7. ASPIRIN [Concomitant]
  8. ATROPINE SULFATE [Concomitant]
  9. AMIODARONE [Suspect]
  10. DOBUTAMINE HYDROCHLORIDE [Suspect]
     Dosage: 8 mcg/kg/min
     Route: 042

REACTIONS (2)
  - Ventricular fibrillation [None]
  - Memory impairment [None]
